FAERS Safety Report 6914554-4 (Version None)
Quarter: 2010Q3

REPORT INFORMATION
  Report Type: 
  Country: None (occurrence: None)
  Receive Date: 20100809
  Receipt Date: 20100729
  Transmission Date: 20110219
  Serious: Yes (Other)
  Sender: FDA-Public Use
  Company Number: US-PFIZER INC-2008083120

PATIENT
  Sex: Female
  Weight: 90.249 kg

DRUGS (3)
  1. CELEBREX [Suspect]
     Indication: OSTEOARTHRITIS
     Dosage: UNK
     Dates: start: 20000101, end: 20081001
  2. NORVASC [Concomitant]
     Dosage: UNK
  3. LIPITOR [Concomitant]
     Dosage: UNK

REACTIONS (5)
  - ANORECTAL DISORDER [None]
  - BLOOD URINE PRESENT [None]
  - EROSIVE OESOPHAGITIS [None]
  - GASTROINTESTINAL EROSION [None]
  - SKIN EROSION [None]
